FAERS Safety Report 5442413-5 (Version None)
Quarter: 2007Q3

REPORT INFORMATION
  Report Type: 
  Country: None (occurrence: None)
  Receive Date: 20070829
  Receipt Date: 20070817
  Transmission Date: 20080115
  Serious: Yes (Hospitalization)
  Sender: FDA-Public Use
  Company Number: 2007US001979

PATIENT
  Age: 34 Year
  Sex: Male

DRUGS (2)
  1. PROGRAF [Suspect]
     Indication: PROPHYLAXIS AGAINST TRANSPLANT REJECTION
  2. PREDNISONE TAB [Concomitant]

REACTIONS (11)
  - ADENOVIRUS INFECTION [None]
  - BK VIRUS INFECTION [None]
  - BLOOD BICARBONATE DECREASED [None]
  - BLOOD CHLORIDE INCREASED [None]
  - BLOOD MAGNESIUM DECREASED [None]
  - CYTOMEGALOVIRUS INFECTION [None]
  - FANCONI SYNDROME [None]
  - POLYOMAVIRUS-ASSOCIATED NEPHROPATHY [None]
  - RENAL FAILURE ACUTE [None]
  - VIRAEMIA [None]
  - VIRAL HAEMORRHAGIC CYSTITIS [None]
